FAERS Safety Report 15879034 (Version 2)
Quarter: 2019Q2

REPORT INFORMATION
  Report Type: Spontaneous
  Country: US (occurrence: US)
  Receive Date: 20190128
  Receipt Date: 20190628
  Transmission Date: 20190711
  Serious: No
  Sender: FDA-Public Use
  Company Number: US-PFIZER INC-2019038083

PATIENT
  Age: 63 Year
  Sex: Female

DRUGS (1)
  1. XELJANZ XR [Suspect]
     Active Substance: TOFACITINIB CITRATE
     Indication: RHEUMATOID ARTHRITIS
     Dosage: 11 MG ONCE DAILY
     Route: 048
     Dates: start: 201812

REACTIONS (3)
  - Musculoskeletal stiffness [Unknown]
  - Product dose omission [Unknown]
  - Blood potassium increased [Unknown]
